FAERS Safety Report 12372052 (Version 1)
Quarter: 2016Q2

REPORT INFORMATION
  Report Type: Spontaneous
  Country: US (occurrence: US)
  Receive Date: 20160516
  Receipt Date: 20160516
  Transmission Date: 20160815
  Serious: No
  Sender: FDA-Public Use
  Company Number: US-009507513-1605USA005507

PATIENT
  Age: 25 Year
  Sex: Female
  Weight: 109.75 kg

DRUGS (2)
  1. NEXPLANON [Suspect]
     Active Substance: ETONOGESTREL
     Indication: CONTRACEPTION
     Dosage: 68 MG/ 1 ROD EVERY 3 YEAR
     Route: 059
     Dates: start: 20141201, end: 20160503
  2. ALBUTEROL. [Concomitant]
     Active Substance: ALBUTEROL
     Dosage: UNK

REACTIONS (2)
  - Device breakage [Recovered/Resolved]
  - Implant site hypoaesthesia [Unknown]

NARRATIVE: CASE EVENT DATE: 20160430
